FAERS Safety Report 7418920-2 (Version None)
Quarter: 2011Q2

REPORT INFORMATION
  Report Type: 
  Country: None (occurrence: None)
  Receive Date: 20110415
  Receipt Date: 20110414
  Transmission Date: 20111010
  Serious: Yes (Death)
  Sender: FDA-Public Use
  Company Number: KR-EISAI INC-E2020-08976-SPO-KR

PATIENT
  Age: 86 Year
  Sex: Female
  Weight: 45 kg

DRUGS (3)
  1. GLIMEPIRIDE [Concomitant]
     Dosage: 2 MG
     Route: 048
     Dates: start: 20101210, end: 20110130
  2. ARICEPT [Suspect]
     Route: 048
     Dates: start: 20101220
  3. AMLODIPINE BESYLATE [Concomitant]
     Indication: HYPERTENSION
     Dosage: 5 MG
     Route: 048
     Dates: start: 20101210, end: 20110130

REACTIONS (1)
  - SEPSIS [None]
